FAERS Safety Report 8071691-1 (Version None)
Quarter: 2012Q1

REPORT INFORMATION
  Report Type: 
  Country: None (occurrence: None)
  Receive Date: 20120125
  Receipt Date: 20120123
  Transmission Date: 20120608
  Serious: Yes (Hospitalization, Other)
  Sender: FDA-Public Use
  Company Number: FR-ROCHE-1016060

PATIENT
  Sex: Female
  Weight: 21.9 kg

DRUGS (4)
  1. ACTEMRA [Suspect]
     Indication: JUVENILE ARTHRITIS
     Route: 042
     Dates: start: 20100208, end: 20111118
  2. IBUPROFEN [Concomitant]
     Dosage: ONE DOSE
     Dates: start: 20100107
  3. ACTEMRA [Suspect]
     Indication: JUVENILE ARTHRITIS
     Dosage: PERMANENTLY DISCONTINUED
     Route: 042
     Dates: end: 20111025
  4. OMEPRAZOLE [Concomitant]
     Dates: start: 20100515

REACTIONS (3)
  - SYSTEMIC SCLEROSIS [None]
  - SCLERODERMA [None]
  - FASCIITIS [None]
